FAERS Safety Report 4432824-9 (Version None)
Quarter: 2004Q3

REPORT INFORMATION
  Report Type: 
  Country: None (occurrence: None)
  Receive Date: 20040823
  Receipt Date: 20040809
  Transmission Date: 20050211
  Serious: Yes (Hospitalization)
  Sender: FDA-Public Use
  Company Number: 04H-044-0270006-00

PATIENT
  Age: 27 Year
  Sex: Male
  Weight: 130 kg

DRUGS (2)
  1. PENTOTHAL [Suspect]
     Indication: INDUCTION OF ANAESTHESIA
     Dosage: 500 MG
     Dates: start: 20040704
  2. SUCCINYLCHOLINE CHLORIDE [Suspect]
     Indication: MUSCLE RELAXANT THERAPY
     Dosage: 110 MG,
     Dates: start: 20040704

REACTIONS (6)
  - ANAESTHETIC COMPLICATION [None]
  - ANAPHYLACTIC REACTION [None]
  - BRAIN OEDEMA [None]
  - CARDIOVASCULAR DISORDER [None]
  - LIVER DISORDER [None]
  - RENAL DISORDER [None]
